FAERS Safety Report 6360298-X (Version None)
Quarter: 2009Q3

REPORT INFORMATION
  Report Type: 
  Country: None (occurrence: None)
  Receive Date: 20090917
  Receipt Date: 20090909
  Transmission Date: 20100115
  Serious: Yes (Other)
  Sender: FDA-Public Use
  Company Number: FR-TEVA-209300ISR

PATIENT
  Age: 59 Year
  Sex: Female

DRUGS (5)
  1. PRAVASTATIN [Suspect]
     Indication: HYPERCHOLESTEROLAEMIA
     Route: 048
     Dates: end: 20090701
  2. VENLAFAXINE HCL [Suspect]
     Dates: end: 20090701
  3. VENLAFAXINE HCL [Suspect]
  4. NEBIVOLOL HCL [Concomitant]
     Indication: HYPERTENSION
  5. LERCANIDIPINE HYDROCHLORIDE [Concomitant]
     Indication: HYPERTENSION
     Dates: start: 20090501

REACTIONS (6)
  - BLOOD CREATINE PHOSPHOKINASE INCREASED [None]
  - HYPERTENSION [None]
  - MYALGIA [None]
  - PRURITUS [None]
  - RESTLESS LEGS SYNDROME [None]
  - SLEEP DISORDER [None]
